FAERS Safety Report 4396529-5 (Version None)
Quarter: 2004Q2

REPORT INFORMATION
  Report Type: 
  Country: None (occurrence: None)
  Receive Date: 20040621
  Receipt Date: 20031014
  Transmission Date: 20050107
  Serious: Yes (Death, Other)
  Sender: FDA-Public Use
  Company Number: USA-2003-0010338

PATIENT
  Age: 26 Year
  Sex: Male
  Weight: 108.8 kg

DRUGS (4)
  1. OXYCONTIN [Suspect]
     Dosage: SEE TEXT
  2. DIAZEPAM [Suspect]
  3. ACETAMINOPHEN [Suspect]
  4. LIDOCAINE [Suspect]

REACTIONS (6)
  - ACCIDENTAL OVERDOSE [None]
  - CHEST PAIN [None]
  - COMA [None]
  - MULTIPLE DRUG OVERDOSE [None]
  - PAIN IN EXTREMITY [None]
  - RESPIRATORY DISTRESS [None]
